FAERS Safety Report 6561461-5 (Version None)
Quarter: 2010Q1

REPORT INFORMATION
  Report Type: 
  Country: None (occurrence: None)
  Receive Date: 20100130
  Receipt Date: 20091012
  Transmission Date: 20100710
  Serious: No
  Sender: FDA-Public Use
  Company Number: US-ABBOTT-09P-163-0602640-00

PATIENT
  Sex: Female
  Weight: 68.1 kg

DRUGS (12)
  1. HUMIRA [Suspect]
     Indication: COLITIS ULCERATIVE
     Dates: start: 20090701
  2. HUMIRA [Suspect]
     Indication: CROHN'S DISEASE
  3. IMURAN [Concomitant]
     Indication: IMMUNE SYSTEM DISORDER
  4. ESTRADIOL [Concomitant]
     Indication: HORMONE REPLACEMENT THERAPY
  5. DEPOPROGESTERONE [Concomitant]
     Indication: HORMONE REPLACEMENT THERAPY
  6. MIRAPEX [Concomitant]
     Indication: RESTLESS LEGS SYNDROME
  7. CLONAZEPAM [Concomitant]
     Indication: SLEEP DISORDER THERAPY
  8. LOVAZA [Concomitant]
     Indication: MEDICAL DIET
  9. VITAMIN E [Concomitant]
     Indication: VITAMIN SUPPLEMENTATION
  10. CALCIUM [Concomitant]
     Indication: OSTEOPOROSIS
  11. FOSAMAX [Concomitant]
     Indication: OSTEOPOROSIS
  12. NORCO [Concomitant]
     Indication: RESTLESS LEGS SYNDROME

REACTIONS (12)
  - ALOPECIA [None]
  - BACK PAIN [None]
  - DIZZINESS [None]
  - DRUG INEFFECTIVE [None]
  - HAIR TEXTURE ABNORMAL [None]
  - HEAD DISCOMFORT [None]
  - HEADACHE [None]
  - OEDEMA PERIPHERAL [None]
  - RENAL PAIN [None]
  - SWELLING FACE [None]
  - TINNITUS [None]
  - WEIGHT INCREASED [None]
